FAERS Safety Report 6977907-4 (Version None)
Quarter: 2010Q3

REPORT INFORMATION
  Report Type: 
  Country: None (occurrence: None)
  Receive Date: 20100913
  Receipt Date: 20100901
  Transmission Date: 20110219
  Serious: Yes (Hospitalization)
  Sender: FDA-Public Use
  Company Number: US-US-EMD SERONO, INC.-234375K09USA

PATIENT
  Sex: Male

DRUGS (5)
  1. REBIF [Suspect]
     Indication: MULTIPLE SCLEROSIS
     Route: 058
     Dates: start: 20061003, end: 20090401
  2. REBIF [Suspect]
     Route: 058
     Dates: start: 20090421
  3. BACLOFEN [Concomitant]
     Route: 065
  4. RANITIDINE [Concomitant]
     Route: 065
  5. ZOLPIDEM [Concomitant]
     Route: 065

REACTIONS (6)
  - DYSARTHRIA [None]
  - FATIGUE [None]
  - H1N1 INFLUENZA [None]
  - URINARY TRACT DISORDER [None]
  - URINARY TRACT INFECTION [None]
  - VOMITING [None]
